FAERS Safety Report 4525397-3 (Version None)
Quarter: 2004Q4

REPORT INFORMATION
  Report Type: 
  Country: None (occurrence: None)
  Receive Date: 20041116
  Receipt Date: 20040802
  Transmission Date: 20050328
  Serious: No
  Sender: FDA-Public Use
  Company Number: S04-USA-05768-01

PATIENT
  Sex: Male

DRUGS (5)
  1. NAMENDA [Suspect]
     Indication: DEMENTIA ALZHEIMER'S TYPE
     Dates: start: 20040713
  2. NAMENDA [Suspect]
     Indication: PARKINSON'S DISEASE
     Dates: start: 20040713
  3. ARICEPT [Concomitant]
  4. SINEMET [Concomitant]
  5. DITROPAN [Concomitant]

REACTIONS (1)
  - DEMENTIA ALZHEIMER'S TYPE [None]
